FAERS Safety Report 15219169 (Version 2)
Quarter: 2018Q3

REPORT INFORMATION
  Report Type: Report from Study
  Country: US (occurrence: US)
  Receive Date: 20180731
  Receipt Date: 20180806
  Transmission Date: 20181010
  Serious: Yes (Hospitalization, Other)
  Sender: FDA-Public Use
  Company Number: PHEH2018US030778

PATIENT
  Sex: Female
  Weight: 95.2 kg

DRUGS (5)
  1. FOLIC ACID. [Concomitant]
     Active Substance: FOLIC ACID
     Indication: PRODUCT USED FOR UNKNOWN INDICATION
     Dosage: UNK
     Route: 065
  2. COSENTYX [Suspect]
     Active Substance: SECUKINUMAB
     Indication: PSORIASIS
     Dosage: 300 MG, Q4W
     Route: 065
     Dates: start: 20170929, end: 20171031
  3. COSENTYX [Suspect]
     Active Substance: SECUKINUMAB
     Dosage: 300 MG, Q4W
     Route: 065
     Dates: start: 20171128, end: 20180223
  4. STELARA [Concomitant]
     Active Substance: USTEKINUMAB
     Indication: PSORIASIS
     Dosage: 45 MG, Q3MO
     Route: 065
     Dates: start: 20150123, end: 20161227
  5. ENSTILAR [Concomitant]
     Active Substance: BETAMETHASONE DIPROPIONATE\CALCIPOTRIENE HYDRATE
     Indication: PSORIASIS
     Dosage: UNK UNK, QD
     Route: 065
     Dates: start: 20170929

REACTIONS (10)
  - Pre-eclampsia [Unknown]
  - Gestational hypertension [Unknown]
  - Platelet count increased [Unknown]
  - Neutrophilia [Unknown]
  - Erythema [Unknown]
  - White blood cell count increased [Unknown]
  - Moraxella infection [Recovered/Resolved]
  - Amniotic cavity infection [Unknown]
  - Streptococcal infection [Recovered/Resolved]
  - Maternal exposure during pregnancy [Unknown]
